FAERS Safety Report 18904952 (Version 1)
Quarter: 2021Q1

REPORT INFORMATION
  Report Type: Spontaneous
  Country: US (occurrence: US)
  Receive Date: 20210217
  Receipt Date: 20210217
  Transmission Date: 20210420
  Serious: No
  Sender: FDA-Public Use
  Company Number: US-TAKEDA-2021TUS008053

PATIENT
  Sex: Male
  Weight: 88 kg

DRUGS (4)
  1. LIALDA [Suspect]
     Active Substance: MESALAMINE
     Indication: PRODUCT USED FOR UNKNOWN INDICATION
     Dosage: 1.2 GRAM, BID
     Route: 065
  2. ENTYVIO [Suspect]
     Active Substance: VEDOLIZUMAB
     Dosage: 300 MILLIGRAM
     Route: 065
     Dates: start: 2012, end: 2014
  3. PREDNISONE. [Suspect]
     Active Substance: PREDNISONE
  4. DICYCLOMINE [DICYCLOVERINE HYDROCHLORIDE] [Suspect]
     Active Substance: DICYCLOMINE HYDROCHLORIDE

REACTIONS (4)
  - Somnolence [Unknown]
  - Insurance issue [Unknown]
  - Abdominal pain [Unknown]
  - Abdominal distension [Unknown]
